FAERS Safety Report 9016335 (Version 3)
Quarter: 2013Q1

REPORT INFORMATION
  Report Type: Spontaneous
  Country: US (occurrence: US)
  Receive Date: 20130117
  Receipt Date: 20130202
  Transmission Date: 20140127
  Serious: Yes (Hospitalization, Other)
  Sender: FDA-Public Use
  Company Number: US-AMGEN-USASP2013001994

PATIENT
  Age: 83 Year
  Sex: Male
  Weight: 104 kg

DRUGS (1)
  1. EPOGEN [Suspect]
     Indication: RENAL FAILURE CHRONIC
     Dosage: 40000 UNIT, QMO
     Route: 058
     Dates: start: 201201

REACTIONS (7)
  - Anaemia [Unknown]
  - Renal failure [Unknown]
  - Cardiac failure congestive [Unknown]
  - Haemoglobin abnormal [Unknown]
  - Therapeutic response decreased [Unknown]
  - Transferrin saturation decreased [Unknown]
  - Serum ferritin abnormal [Unknown]
